FAERS Safety Report 22196236 (Version 4)
Quarter: 2023Q2

REPORT INFORMATION
  Report Type: Spontaneous
  Country: US (occurrence: US)
  Receive Date: 20230411
  Receipt Date: 20230505
  Transmission Date: 20230721
  Serious: No
  Sender: FDA-Public Use
  Company Number: US-SANOFI-01567489

PATIENT
  Age: 71 Year
  Sex: Female
  Weight: 109 kg

DRUGS (2)
  1. LANTUS SOLOSTAR [Suspect]
     Active Substance: INSULIN GLARGINE
     Indication: Type 2 diabetes mellitus
     Dosage: 30 IU, QD
     Dates: start: 202303
  2. LANTUS SOLOSTAR [Suspect]
     Active Substance: INSULIN GLARGINE
     Dosage: 10 IU, Q3D
     Route: 065

REACTIONS (3)
  - Injection site bruising [Unknown]
  - Device issue [Unknown]
  - Inappropriate schedule of product administration [Unknown]
